FAERS Safety Report 23332479 (Version 1)
Quarter: 2023Q4

REPORT INFORMATION
  Report Type: Spontaneous
  Country: US (occurrence: US)
  Receive Date: 20231222
  Receipt Date: 20231222
  Transmission Date: 20240109
  Serious: Yes (Other)
  Sender: FDA-Public Use
  Company Number: US-PRESTIGE-202312-US-003756

PATIENT
  Sex: Male

DRUGS (1)
  1. CHLORASEPTIC MAX [Suspect]
     Active Substance: BENZOCAINE\MENTHOL
     Indication: Dyspnoea
     Dosage: UNKNOWN DOSE
     Route: 048

REACTIONS (2)
  - Seizure [Recovered/Resolved]
  - Product use in unapproved indication [Unknown]

NARRATIVE: CASE EVENT DATE: 20231119
